FAERS Safety Report 4672461-4 (Version None)
Quarter: 2005Q2

REPORT INFORMATION
  Report Type: 
  Country: None (occurrence: None)
  Receive Date: 20050523
  Receipt Date: 20050505
  Transmission Date: 20051028
  Serious: Yes (Life-Threatening, Hospitalization)
  Sender: FDA-Public Use
  Company Number: DSA_26425_2005

PATIENT
  Age: 75 Year
  Sex: Female

DRUGS (3)
  1. DICLOFENAC [Suspect]
     Indication: CHOLELITHIASIS
     Dosage: 50 MG TID PO
     Route: 048
  2. DICLOFENAC [Suspect]
     Indication: CHOLELITHIASIS
  3. METFORMIN HCL [Suspect]
     Indication: DIABETES MELLITUS
     Dosage: 1 G TID

REACTIONS (27)
  - ANION GAP INCREASED [None]
  - ANURIA [None]
  - BACILLUS INFECTION [None]
  - BLOOD CHLORIDE DECREASED [None]
  - BLOOD CULTURE POSITIVE [None]
  - BLOOD PRESSURE SYSTOLIC DECREASED [None]
  - BLOOD SODIUM DECREASED [None]
  - ELECTROCARDIOGRAM P WAVE ABNORMAL [None]
  - ELECTROCARDIOGRAM QRS COMPLEX PROLONGED [None]
  - ELECTROCARDIOGRAM T WAVE PEAKED [None]
  - GALLBLADDER ABSCESS [None]
  - GALLBLADDER PERFORATION [None]
  - GENERAL PHYSICAL HEALTH DETERIORATION [None]
  - HAEMODIALYSIS [None]
  - HEART RATE DECREASED [None]
  - HYPERKALAEMIA [None]
  - HYPOTHERMIA [None]
  - HYPOVOLAEMIA [None]
  - LACTIC ACIDOSIS [None]
  - METABOLIC ACIDOSIS [None]
  - POLYURIA [None]
  - PULSE ABSENT [None]
  - RENAL FAILURE ACUTE [None]
  - RESPIRATORY FAILURE [None]
  - SEPSIS [None]
  - SYNCOPE [None]
  - VASOCONSTRICTION [None]
